FAERS Safety Report 16354527 (Version 4)
Quarter: 2019Q4

REPORT INFORMATION
  Report Type: Spontaneous
  Country: US (occurrence: US)
  Receive Date: 20190524
  Receipt Date: 20191210
  Transmission Date: 20200122
  Serious: Yes (Other)
  Sender: FDA-Public Use
  Company Number: US-TAKEDA-2019TUS032216

PATIENT

DRUGS (8)
  1. CRESTOR [Concomitant]
     Active Substance: ROSUVASTATIN CALCIUM
     Dosage: UNK
  2. ATENOLOL. [Concomitant]
     Active Substance: ATENOLOL
     Indication: BLOOD PRESSURE MEASUREMENT
     Dosage: 50 MILLIGRAM
  3. DEXILANT [Suspect]
     Active Substance: DEXLANSOPRAZOLE
     Indication: GASTROOESOPHAGEAL REFLUX DISEASE
     Dosage: 60 MILLIGRAM, QD
     Route: 048
     Dates: start: 201104, end: 201512
  4. TRAZODONE [Concomitant]
     Active Substance: TRAZODONE HYDROCHLORIDE
     Indication: PAIN
     Dosage: 100 MILLIGRAM
  5. TRIMET                             /00465202/ [Concomitant]
     Indication: HYPERTENSION
     Dosage: UNK
     Dates: start: 1999
  6. TIZANIDINE. [Concomitant]
     Active Substance: TIZANIDINE
     Indication: PAIN
     Dosage: 4 MILLIGRAM
  7. TYLENOL [Concomitant]
     Active Substance: ACETAMINOPHEN
     Indication: PAIN
     Dosage: UNK
  8. LISINOPRIL. [Concomitant]
     Active Substance: LISINOPRIL
     Indication: HYPERTENSION
     Dosage: UNK
     Dates: start: 2012

REACTIONS (4)
  - Renal tubular necrosis [Recovered/Resolved]
  - Renal failure [Recovered/Resolved]
  - Chronic kidney disease [Recovered/Resolved]
  - Acute kidney injury [Unknown]

NARRATIVE: CASE EVENT DATE: 2015
